FAERS Safety Report 9352805 (Version 5)
Quarter: 2014Q1

REPORT INFORMATION
  Report Type: Report from Study
  Country: ES (occurrence: ES)
  Receive Date: 20130618
  Receipt Date: 20140129
  Transmission Date: 20141002
  Serious: Yes (Hospitalization, Other)
  Sender: FDA-Public Use
  Company Number: ES-BIOGENIDEC-2013BI012024

PATIENT
  Age: 43 Year
  Sex: Male

DRUGS (16)
  1. TYSABRI [Suspect]
     Indication: MULTIPLE SCLEROSIS
     Route: 042
     Dates: start: 20081222
  2. AMLODIPINE [Concomitant]
  3. DULOXETIN [Concomitant]
  4. DULOXETIN [Concomitant]
  5. LORMETAZEPAM [Concomitant]
  6. TAMSULOSINE [Concomitant]
  7. CHLORPROMAZINE [Concomitant]
  8. CHLORPROMAZINE [Concomitant]
  9. OMEPRAZOL [Concomitant]
  10. LIORESAL [Concomitant]
  11. LIORESAL [Concomitant]
  12. LYRICA [Concomitant]
  13. ORFIDAL [Concomitant]
  14. TORASEMIDE [Concomitant]
  15. TRAMADOL [Concomitant]
  16. LEVOTHYROXIN [Concomitant]

REACTIONS (3)
  - Neurogenic bladder [Recovered/Resolved]
  - Renal failure acute [Recovered/Resolved]
  - Toxicity to various agents [Recovered/Resolved]
